FAERS Safety Report 6619997-4 (Version None)
Quarter: 2010Q1

REPORT INFORMATION
  Report Type: 
  Country: None (occurrence: None)
  Receive Date: 20100309
  Receipt Date: 20100303
  Transmission Date: 20100710
  Serious: Yes (Hospitalization)
  Sender: FDA-Public Use
  Company Number: IT-BRISTOL-MYERS SQUIBB COMPANY-14999650

PATIENT
  Sex: Female

DRUGS (3)
  1. ABILIFY [Suspect]
     Indication: PSYCHOTIC DISORDER
     Route: 048
     Dates: start: 20100224
  2. MODITEN DEPOT [Concomitant]
  3. LORAZEPAM [Concomitant]

REACTIONS (2)
  - HYPERTENSIVE CRISIS [None]
  - HYPOAESTHESIA [None]
